FAERS Safety Report 5987178-3 (Version None)
Quarter: 2008Q4

REPORT INFORMATION
  Report Type: 
  Country: None (occurrence: None)
  Receive Date: 20081209
  Receipt Date: 20081128
  Transmission Date: 20090506
  Serious: Yes (Other)
  Sender: FDA-Public Use
  Company Number: GB-JNJFOC-20081202071

PATIENT
  Age: 66 Year
  Sex: Female

DRUGS (5)
  1. TRAMADOL HCL [Suspect]
     Indication: PAIN
     Route: 048
  2. ACETAMINOPHEN W/ CODEINE [Concomitant]
  3. FUROSEMIDE [Concomitant]
  4. LANSOPRAZOLE [Concomitant]
  5. LOSARTAN POTASSIUM [Concomitant]

REACTIONS (1)
  - CHEST PAIN [None]
